FAERS Safety Report 20298336 (Version 2)
Quarter: 2022Q1

REPORT INFORMATION
  Report Type: Spontaneous
  Country: US (occurrence: None)
  Receive Date: 20220105
  Receipt Date: 20220316
  Transmission Date: 20220424
  Serious: No
  Sender: FDA-Public Use
  Company Number: US-ROCHE-2987250

PATIENT
  Sex: Male

DRUGS (1)
  1. OCREVUS [Suspect]
     Active Substance: OCRELIZUMAB
     Indication: Multiple sclerosis
     Route: 042
     Dates: start: 20170711

REACTIONS (2)
  - Paternal exposure during pregnancy [Unknown]
  - SARS-CoV-2 test positive [Recovering/Resolving]
